FAERS Safety Report 8119151-3 (Version None)
Quarter: 2012Q1

REPORT INFORMATION
  Report Type: 
  Country: None (occurrence: None)
  Receive Date: 20120207
  Receipt Date: 20120207
  Transmission Date: 20120608
  Serious: Yes (Hospitalization, Other)
  Sender: FDA-Public Use
  Company Number: None

PATIENT
  Age: 23 Year
  Sex: Female
  Weight: 52.163 kg

DRUGS (1)
  1. LUPRON DEPOT [Suspect]
     Indication: ENDOMETRIOSIS
     Dosage: 1 VIAL
     Route: 030
     Dates: start: 20111207, end: 20111211

REACTIONS (10)
  - FALL [None]
  - PAIN [None]
  - HYPOAESTHESIA [None]
  - MUSCULAR WEAKNESS [None]
  - VISUAL IMPAIRMENT [None]
  - MONOPLEGIA [None]
  - MIGRAINE [None]
  - PARAESTHESIA [None]
  - GAIT DISTURBANCE [None]
  - BONE PAIN [None]
